FAERS Safety Report 14823596 (Version 1)
Quarter: 2018Q2

REPORT INFORMATION
  Report Type: Report from Study
  Country: ZA (occurrence: ZA)
  Receive Date: 20180428
  Receipt Date: 20180428
  Transmission Date: 20180711
  Serious: Yes (Death, Hospitalization)
  Sender: FDA-Public Use
  Company Number: ZA-AMGEN LTD-ZAFSL2018056606

PATIENT
  Age: 61 Year
  Sex: Female

DRUGS (1)
  1. ARANESP [Suspect]
     Active Substance: DARBEPOETIN ALFA
     Indication: ANAEMIA
     Dosage: 60 MUG, QWK
     Route: 058
     Dates: start: 201604

REACTIONS (2)
  - Death [Fatal]
  - Catheter placement [Unknown]

NARRATIVE: CASE EVENT DATE: 201712
